FAERS Safety Report 7854342-8 (Version None)
Quarter: 2011Q4

REPORT INFORMATION
  Report Type: 
  Country: None (occurrence: None)
  Receive Date: 20111026
  Receipt Date: 20111017
  Transmission Date: 20120403
  Serious: Yes (Hospitalization)
  Sender: FDA-Public Use
  Company Number: US-ASTRAZENECA-2010SE61050

PATIENT
  Age: 42 Year
  Sex: Female

DRUGS (5)
  1. PRILOSEC [Suspect]
     Route: 048
  2. PRILOSEC [Suspect]
     Route: 048
  3. PROZAC [Concomitant]
  4. NEXIUM [Suspect]
     Route: 048
  5. ANTIDEPRESSANTS [Concomitant]

REACTIONS (7)
  - ACCIDENT [None]
  - DRUG DOSE OMISSION [None]
  - GASTROOESOPHAGEAL REFLUX DISEASE [None]
  - DRUG INEFFECTIVE [None]
  - BEDRIDDEN [None]
  - FALL [None]
  - MALAISE [None]
